FAERS Safety Report 19798934 (Version 1)
Quarter: 2021Q3

REPORT INFORMATION
  Report Type: Spontaneous
  Country: US (occurrence: US)
  Receive Date: 20210907
  Receipt Date: 20210907
  Transmission Date: 20211014
  Serious: No
  Sender: FDA-Public Use
  Company Number: None

PATIENT

DRUGS (2)
  1. SCOPOLAMINE PATCH [Suspect]
     Active Substance: SCOPOLAMINE
     Dosage: ?          OTHER FREQUENCY:Q3DAYS;?
     Route: 062
  2. SCOPOLAMINE PATCH [Suspect]
     Active Substance: SCOPOLAMINE
     Dosage: ?          OTHER FREQUENCY:Q3DAYS;?
     Route: 062

REACTIONS (3)
  - Product label issue [None]
  - Product label confusion [None]
  - Circumstance or information capable of leading to medication error [None]

NARRATIVE: CASE EVENT DATE: 20210905
